FAERS Safety Report 4795377-1 (Version None)
Quarter: 2005Q4

REPORT INFORMATION
  Report Type: 
  Country: None (occurrence: None)
  Receive Date: 20051012
  Receipt Date: 20050909
  Transmission Date: 20060501
  Serious: Yes (Hospitalization, Other)
  Sender: FDA-Public Use
  Company Number: 2005PK01720

PATIENT
  Age: 40 Year
  Sex: Female

DRUGS (3)
  1. SEROQUEL [Suspect]
     Indication: DELUSIONAL DISORDER, PERSECUTORY TYPE
     Route: 048
     Dates: start: 20010101
  2. CITALOPRAM [Concomitant]
     Indication: DEPRESSION
     Route: 048
  3. ZOPICLON [Concomitant]
     Route: 048

REACTIONS (2)
  - ATROPHIE BLANCHE [None]
  - FINGER AMPUTATION [None]
